FAERS Safety Report 23889179 (Version 1)
Quarter: 2024Q2

REPORT INFORMATION
  Report Type: Report from Study
  Country: DE (occurrence: DE)
  Receive Date: 20240523
  Receipt Date: 20240523
  Transmission Date: 20240716
  Serious: Yes (Other)
  Sender: FDA-Public Use
  Company Number: DE-AMGEN-DEUSL2024007611

PATIENT
  Age: 43 Year
  Sex: Male

DRUGS (1)
  1. VECTIBIX [Suspect]
     Active Substance: PANITUMUMAB
     Indication: Rectal cancer metastatic
     Dosage: UNK UNK, Q2WK
     Route: 065
     Dates: start: 202209

REACTIONS (5)
  - Hyperthyroidism [Unknown]
  - Nail bed infection [Unknown]
  - Pustule [Unknown]
  - Skin exfoliation [Unknown]
  - Stoma complication [Unknown]
